FAERS Safety Report 4981733-5 (Version None)
Quarter: 2006Q2

REPORT INFORMATION
  Report Type: 
  Country: None (occurrence: None)
  Receive Date: 20060421
  Receipt Date: 20060415
  Transmission Date: 20061013
  Serious: Yes (Other)
  Sender: FDA-Public Use
  Company Number: 2006051726

PATIENT
  Age: 61 Year
  Sex: Male
  Weight: 78.9259 kg

DRUGS (3)
  1. LIPITOR [Suspect]
     Indication: BLOOD CHOLESTEROL INCREASED
     Dosage: 10 MG (10 MG, 1 IN 1 D), ORAL
     Route: 048
  2. AVAPRO [Concomitant]
  3. PRILOSEC [Concomitant]

REACTIONS (1)
  - PROSTATE CANCER [None]
